FAERS Safety Report 16177345 (Version 1)
Quarter: 2019Q2

REPORT INFORMATION
  Report Type: Report from Study
  Country: ES (occurrence: ES)
  Receive Date: 20190410
  Receipt Date: 20190410
  Transmission Date: 20190711
  Serious: Yes (Death, Hospitalization, Other)
  Sender: FDA-Public Use
  Company Number: ES-ACCORD-119567

PATIENT
  Age: 64 Year
  Sex: Female

DRUGS (6)
  1. AMLODIPINE [Concomitant]
     Active Substance: AMLODIPINE BESYLATE
     Indication: HYPERTENSION
     Route: 048
     Dates: start: 20171120, end: 20180211
  2. OMEPRAZOLE. [Concomitant]
     Active Substance: OMEPRAZOLE
     Indication: PROPHYLAXIS
     Route: 048
     Dates: end: 20180211
  3. TACROLIMUS. [Suspect]
     Active Substance: TACROLIMUS
     Indication: PROPHYLAXIS
     Route: 048
     Dates: start: 20171218, end: 20180211
  4. AREMIS [Concomitant]
     Indication: DEPRESSION
     Dosage: 50 MG FILM-COATED TABLETS, 30 TABLETS
     Route: 048
     Dates: start: 20080214, end: 20180211
  5. SIMVASTATIN. [Concomitant]
     Active Substance: SIMVASTATIN
     Indication: DYSLIPIDAEMIA
     Route: 048
     Dates: start: 20121116, end: 20180211
  6. PREDNISONE. [Interacting]
     Active Substance: PREDNISONE
     Indication: PROPHYLAXIS
     Route: 048
     Dates: start: 20171219, end: 20180211

REACTIONS (2)
  - Pneumocystis jirovecii pneumonia [Fatal]
  - Drug interaction [Unknown]

NARRATIVE: CASE EVENT DATE: 20180207
